FAERS Safety Report 14258392 (Version 3)
Quarter: 2021Q4

REPORT INFORMATION
  Report Type: Spontaneous
  Country: US (occurrence: US)
  Receive Date: 20171207
  Receipt Date: 20211202
  Transmission Date: 20220304
  Serious: No
  Sender: FDA-Public Use
  Company Number: US-PFIZER INC-2017517099

PATIENT
  Age: 38 Year
  Sex: Female

DRUGS (2)
  1. METHOTREXATE SODIUM [Suspect]
     Active Substance: METHOTREXATE SODIUM
     Indication: Rheumatoid arthritis
     Dosage: UNK
     Dates: start: 201004, end: 201212
  2. METHOTREXATE SODIUM [Suspect]
     Active Substance: METHOTREXATE SODIUM
     Dosage: 10 MG, WEEKLY

REACTIONS (7)
  - Drug ineffective [Unknown]
  - Condition aggravated [Unknown]
  - Diarrhoea [Unknown]
  - Mouth ulceration [Unknown]
  - Joint swelling [Unknown]
  - Nausea [Unknown]
  - Vomiting [Unknown]
